FAERS Safety Report 23584110 (Version 4)
Quarter: 2024Q3

REPORT INFORMATION
  Report Type: Spontaneous
  Country: US (occurrence: US)
  Receive Date: 20240301
  Receipt Date: 20240902
  Transmission Date: 20241016
  Serious: Yes (Other)
  Sender: BRISTOL MYERS SQUIBB
  Company Number: US-BRISTOL-MYERS SQUIBB COMPANY-2024-032955

PATIENT
  Age: 66 Year
  Sex: Female

DRUGS (3)
  1. POMALYST [Suspect]
     Active Substance: POMALIDOMIDE
     Indication: Plasma cell myeloma
     Dosage: TAKE 1 WHOLE CAPSULE BY MOUTH WITH WATER ONCE DAILY FOR 21 DAYS, THEN OFF FOR 7 DAYS EVERY 28 DAY CY
     Route: 048
  2. POMALYST [Suspect]
     Active Substance: POMALIDOMIDE
     Dosage: TAKE 1 CAPSULE BY MOUTH DAILY ON DAYS 1-21 FOLLOWED BY 7 DAYS OFF EVERY 28 DAY CYCLE. SWALLOW WHOLE
     Route: 048
  3. POMALYST [Suspect]
     Active Substance: POMALIDOMIDE
     Dosage: FREQUENCY: TAKE 1 CAPSULE WHOLE BY MOUTH ONCE DAILY AT SAME TIME EACH DAY, W/ WATER, W/O FOOD, 2 HOU
     Route: 048
     Dates: end: 202406

REACTIONS (4)
  - Malaise [Not Recovered/Not Resolved]
  - Abdominal distension [Recovering/Resolving]
  - Muscle spasms [Recovering/Resolving]
  - Gastrointestinal disorder [Recovering/Resolving]

NARRATIVE: CASE EVENT DATE: 20240101
